FAERS Safety Report 22084029 (Version 1)
Quarter: 2023Q1

REPORT INFORMATION
  Report Type: Report from Study
  Country: US (occurrence: US)
  Receive Date: 20230310
  Receipt Date: 20230310
  Transmission Date: 20230418
  Serious: Yes (Death, Life-Threatening, Other)
  Sender: FDA-Public Use
  Company Number: US-PFIZER INC-202300104437

PATIENT
  Age: 20 Year
  Sex: Female

DRUGS (1)
  1. FENTANYL CITRATE [Suspect]
     Active Substance: FENTANYL CITRATE
     Dosage: UNK

REACTIONS (14)
  - Toxicity to various agents [Fatal]
  - Hypotension [Fatal]
  - Bradycardia [Fatal]
  - Respiratory depression [Fatal]
  - Myocardial injury [Fatal]
  - Myocardial ischaemia [Fatal]
  - Coma [Fatal]
  - Depressed level of consciousness [Fatal]
  - Seizure [Fatal]
  - Hepatotoxicity [Fatal]
  - Rhabdomyolysis [Fatal]
  - Cardiac arrest [Fatal]
  - Metabolic acidosis [Fatal]
  - Coagulopathy [Fatal]
